FAERS Safety Report 12677601 (Version 1)
Quarter: 2016Q3

REPORT INFORMATION
  Report Type: Spontaneous
  Country: IT (occurrence: IT)
  Receive Date: 20160823
  Receipt Date: 20160823
  Transmission Date: 20161109
  Serious: Yes (Other)
  Sender: FDA-Public Use
  Company Number: IT-PFIZER INC-2016393279

PATIENT
  Age: 75 Year
  Sex: Male

DRUGS (9)
  1. ZYVOXID [Suspect]
     Active Substance: LINEZOLID
     Indication: POST PROCEDURAL INFECTION
     Dosage: 1200 MG, DAILY
     Route: 042
     Dates: start: 20160628, end: 20160729
  2. LEVOXACIN [Suspect]
     Active Substance: LEVOFLOXACIN
     Indication: MENINGITIS
  3. DECADRON [Suspect]
     Active Substance: DEXAMETHASONE
     Indication: OEDEMA
     Dosage: 12 MG, DAILY
     Route: 042
     Dates: start: 20160628, end: 20160706
  4. MERREM [Suspect]
     Active Substance: MEROPENEM
     Indication: BACTERIAL INFECTION
     Dosage: 2 G/100 ML, 3X/DAY
     Route: 042
     Dates: start: 20160628, end: 20160706
  5. ZYVOXID [Suspect]
     Active Substance: LINEZOLID
     Indication: MENINGITIS
  6. ANTRA /00661201/ [Concomitant]
     Active Substance: OMEPRAZOLE
     Dosage: 80 MG, UNK
     Route: 042
  7. LEVOXACIN [Suspect]
     Active Substance: LEVOFLOXACIN
     Indication: POST PROCEDURAL INFECTION
     Dosage: 1000 MG, DAILY
     Route: 042
     Dates: start: 20160629, end: 20160706
  8. FLUIMUCIL [Concomitant]
     Active Substance: ACETYLCYSTEINE
     Indication: INCREASED UPPER AIRWAY SECRETION
     Dosage: UNK
     Route: 042
  9. CLEXANE [Concomitant]
     Active Substance: ENOXAPARIN SODIUM
     Indication: THROMBOSIS PROPHYLAXIS
     Dosage: 4000 IU, UNK
     Route: 058

REACTIONS (3)
  - Hyperamylasaemia [Recovered/Resolved]
  - Gamma-glutamyltransferase increased [Recovered/Resolved]
  - Hyperbilirubinaemia [Recovered/Resolved]

NARRATIVE: CASE EVENT DATE: 20160704
